FAERS Safety Report 11700179 (Version 1)
Quarter: 2015Q4

REPORT INFORMATION
  Report Type: Spontaneous
  Country: DK (occurrence: DK)
  Receive Date: 20151105
  Receipt Date: 20151105
  Transmission Date: 20160304
  Serious: Yes (Life-Threatening, Hospitalization)
  Sender: FDA-Public Use
  Company Number: DK-JNJFOC-20151023636

PATIENT
  Age: 57 Year
  Sex: Male

DRUGS (4)
  1. ELIGARD [Concomitant]
     Active Substance: LEUPROLIDE ACETATE
     Indication: PROSTATE CANCER
     Dates: start: 2011
  2. ZYTIGA [Suspect]
     Active Substance: ABIRATERONE ACETATE
     Indication: PROSTATE CANCER METASTATIC
     Route: 048
     Dates: start: 20130802, end: 20150924
  3. RAMIPRIL. [Concomitant]
     Active Substance: RAMIPRIL
     Indication: INTRACRANIAL PRESSURE INCREASED
     Route: 065
     Dates: start: 2008
  4. PREDNISOLONE. [Concomitant]
     Active Substance: PREDNISOLONE
     Indication: PROSTATE CANCER
     Route: 065
     Dates: start: 20130802

REACTIONS (8)
  - Cardiac arrest [Recovered/Resolved]
  - Implantable defibrillator insertion [Recovered/Resolved]
  - Electrocardiogram QT prolonged [Recovered/Resolved]
  - Ventricular tachycardia [Recovered/Resolved]
  - Ventricular fibrillation [Recovered/Resolved]
  - Syncope [Recovered/Resolved]
  - Resuscitation [Recovered/Resolved]
  - Percutaneous coronary intervention [Recovered/Resolved]

NARRATIVE: CASE EVENT DATE: 2015
